FAERS Safety Report 10031402 (Version 1)
Quarter: 2014Q1

REPORT INFORMATION
  Report Type: Spontaneous
  Country: US (occurrence: US)
  Receive Date: 20140324
  Receipt Date: 20140324
  Transmission Date: 20141002
  Serious: Yes (Hospitalization)
  Sender: FDA-Public Use
  Company Number: US-BAYER-2014-041793

PATIENT
  Age: 18 Year
  Sex: Female
  Weight: 72.56 kg

DRUGS (10)
  1. YAZ [Suspect]
  2. GARDASIL [Concomitant]
     Indication: PAPILLOMA VIRAL INFECTION
     Dosage: UNK
     Route: 030
     Dates: start: 20080414
  3. MOTRIN [Concomitant]
     Dosage: UNK
     Dates: start: 20080617
  4. DILAUDID [Concomitant]
     Indication: PAIN
  5. COMPAZINE [Concomitant]
     Indication: PAIN
  6. MORPHINE [Concomitant]
     Indication: PAIN
  7. NORCO [Concomitant]
     Indication: PAIN
  8. ZOLPIDEM [Concomitant]
     Indication: SLEEP DISORDER
  9. AMBIEN [Concomitant]
     Indication: INSOMNIA
  10. NITROFURANTOIN [Concomitant]

REACTIONS (2)
  - Pulmonary embolism [None]
  - Deep vein thrombosis [None]
